FAERS Safety Report 4607572-2 (Version None)
Quarter: 2005Q1

REPORT INFORMATION
  Report Type: 
  Country: None (occurrence: None)
  Receive Date: 20050314
  Receipt Date: 20021023
  Transmission Date: 20050727
  Serious: Yes (Death, Life-Threatening, Hospitalization, Other)
  Sender: FDA-Public Use
  Company Number: PHBS2002JP13084

PATIENT
  Age: 64 Year
  Sex: Male
  Weight: 52 kg

DRUGS (6)
  1. LENDORM [Concomitant]
     Dosage: 0.25 MG/DAY
     Route: 048
     Dates: start: 20010905
  2. MUCOSTA [Concomitant]
     Dosage: 300 MG/DAY
     Route: 048
     Dates: start: 20010905
  3. FERROMIA [Concomitant]
     Dosage: 200 MG/DAY
     Route: 048
     Dates: start: 20010905
  4. GASTER [Concomitant]
     Dosage: 40 MG/DAY
     Route: 048
     Dates: start: 20010905
  5. GLEEVEC [Suspect]
     Indication: GASTROINTESTINAL STROMAL TUMOUR
     Dosage: 400 MG, BID
     Route: 048
     Dates: start: 20011212, end: 20020320
  6. GLEEVEC [Suspect]
     Dosage: 400 MG/D
     Route: 048
     Dates: start: 20020411, end: 20020801

REACTIONS (19)
  - ANOREXIA [None]
  - ASTHENIA [None]
  - CACHEXIA [None]
  - DRUG RESISTANCE [None]
  - DYSPNOEA [None]
  - HEPATIC FUNCTION ABNORMAL [None]
  - LUNG NEOPLASM [None]
  - MALIGNANT NEOPLASM PROGRESSION [None]
  - NAUSEA [None]
  - NEUTROPENIA [None]
  - PANCYTOPENIA [None]
  - PERIORBITAL OEDEMA [None]
  - PRODUCTIVE COUGH [None]
  - PULMONARY GRANULOMA [None]
  - PULMONARY TUBERCULOSIS [None]
  - PYREXIA [None]
  - SPUTUM DISCOLOURED [None]
  - TUMOUR NECROSIS [None]
  - VOMITING [None]
